FAERS Safety Report 15172632 (Version 2)
Quarter: 2018Q3

REPORT INFORMATION
  Report Type: Report from Study
  Country: US (occurrence: US)
  Receive Date: 20180720
  Receipt Date: 20180911
  Transmission Date: 20181010
  Serious: Yes (Death, Hospitalization, Other)
  Sender: FDA-Public Use
  Company Number: US-ADAMAS PHARMA, LLC-2018ADA01454

PATIENT
  Age: 72 Year
  Sex: Male

DRUGS (20)
  1. SINEMET [Concomitant]
     Active Substance: CARBIDOPA\LEVODOPA
  2. IMBRUVICA [Concomitant]
     Active Substance: IBRUTINIB
  3. SIMVASTATIN. [Concomitant]
     Active Substance: SIMVASTATIN
  4. GOCOVRI [Suspect]
     Active Substance: AMANTADINE
     Indication: DYSKINESIA
     Dosage: 137 MG, 1X/DAY AT BEDTIME
     Route: 048
     Dates: start: 20180205
  5. ENTACAPONE. [Concomitant]
     Active Substance: ENTACAPONE
  6. AMBIEN [Concomitant]
     Active Substance: ZOLPIDEM TARTRATE
  7. METOPROLOL TAR [Concomitant]
     Active Substance: METOPROLOL TARTRATE
  8. FISH OIL [Concomitant]
     Active Substance: FISH OIL
  9. VITAMIN B12 [Concomitant]
     Active Substance: CYANOCOBALAMIN
  10. OMEPRAZOLE. [Concomitant]
     Active Substance: OMEPRAZOLE
  11. QUINAPRIL. [Concomitant]
     Active Substance: QUINAPRIL
  12. STALEVO [Concomitant]
     Active Substance: CARBIDOPA\ENTACAPONE\LEVODOPA
  13. KOMBIGLYZE XR [Concomitant]
     Active Substance: METFORMIN HYDROCHLORIDE\SAXAGLIPTIN HYDROCHLORIDE
  14. ASPIRIN LOW EC [Concomitant]
  15. OCUVITE [Concomitant]
     Active Substance: VITAMINS
  16. VITAMIN D [Concomitant]
     Active Substance: CHOLECALCIFEROL
  17. CARVEDILOL. [Concomitant]
     Active Substance: CARVEDILOL
  18. CARBIDOPA. [Concomitant]
     Active Substance: CARBIDOPA
  19. SPIRONOLACTONE. [Concomitant]
     Active Substance: SPIRONOLACTONE
  20. TYLENOL [Concomitant]
     Active Substance: ACETAMINOPHEN
     Dosage: UNK, 3X/DAY

REACTIONS (2)
  - Fall [Not Recovered/Not Resolved]
  - Subdural haematoma [Fatal]

NARRATIVE: CASE EVENT DATE: 20180628
